FAERS Safety Report 20391304 (Version 2)
Quarter: 2022Q1

REPORT INFORMATION
  Report Type: Spontaneous
  Country: US (occurrence: US)
  Receive Date: 20220128
  Receipt Date: 20220324
  Transmission Date: 20220423
  Serious: No
  Sender: FDA-Public Use
  Company Number: US-BIOGEN-2022BI01089312

PATIENT
  Sex: Female

DRUGS (2)
  1. VUMERITY [Suspect]
     Active Substance: DIROXIMEL FUMARATE
     Indication: Multiple sclerosis
     Dosage: TITRATION: TWICE A DAY ORALLY FOR 7 DAYS?MAINTENANCE: TWO CAPSULES A DAY, TWICE A DAY
     Route: 048
     Dates: start: 20210225
  2. VUMERITY [Suspect]
     Active Substance: DIROXIMEL FUMARATE
     Dosage: TITRATION: TWICE A DAY ORALLY FOR 7 DAYS?MAINTENANCE: TWO CAPSULES A DAY, TWICE A DAY
     Route: 048
     Dates: end: 20211015

REACTIONS (7)
  - Hypoaesthesia [Unknown]
  - Headache [Unknown]
  - Muscle spasms [Recovered/Resolved]
  - Rhinorrhoea [Recovered/Resolved]
  - Lower respiratory tract congestion [Recovered/Resolved]
  - Pruritus [Unknown]
  - Nausea [Recovered/Resolved]
